FAERS Safety Report 8265596-0 (Version None)
Quarter: 2012Q2

REPORT INFORMATION
  Report Type: 
  Country: None (occurrence: None)
  Receive Date: 20120404
  Receipt Date: 20120322
  Transmission Date: 20120825
  Serious: Yes (Other)
  Sender: FDA-Public Use
  Company Number: LMI-2012-00113

PATIENT
  Age: 58 Year
  Sex: Male
  Weight: 144.2439 kg

DRUGS (10)
  1. ASPIRIN [Concomitant]
  2. DEFINITY [Suspect]
     Indication: CARDIOMYOPATHY
     Dosage: SEE IMAGE
     Route: 040
     Dates: start: 20120322, end: 20120322
  3. DEFINITY [Suspect]
     Indication: ECHOCARDIOGRAM
     Dosage: SEE IMAGE
     Route: 040
     Dates: start: 20120322, end: 20120322
  4. DEFINITY [Suspect]
     Indication: CARDIOMYOPATHY
     Dosage: SEE IMAGE
     Route: 040
     Dates: start: 20120322, end: 20120322
  5. DEFINITY [Suspect]
     Indication: ECHOCARDIOGRAM
     Dosage: SEE IMAGE
     Route: 040
     Dates: start: 20120322, end: 20120322
  6. DEFINITY [Suspect]
     Indication: CARDIOMYOPATHY
     Dosage: SEE IMAGE
     Route: 040
     Dates: start: 20120322, end: 20120322
  7. DEFINITY [Suspect]
     Indication: ECHOCARDIOGRAM
     Dosage: SEE IMAGE
     Route: 040
     Dates: start: 20120322, end: 20120322
  8. LASIX [Concomitant]
  9. QUINAPRIL HCL [Concomitant]
  10. COREG [Concomitant]

REACTIONS (9)
  - NO REACTION ON PREVIOUS EXPOSURE TO DRUG [None]
  - ERYTHEMA [None]
  - DYSPNOEA [None]
  - PRURITUS [None]
  - FATIGUE [None]
  - BLOOD PRESSURE DECREASED [None]
  - FLUSHING [None]
  - OCULAR HYPERAEMIA [None]
  - UNRESPONSIVE TO STIMULI [None]
